FAERS Safety Report 8267457-X (Version None)
Quarter: 2012Q2

REPORT INFORMATION
  Report Type: 
  Country: None (occurrence: None)
  Receive Date: 20120405
  Receipt Date: 20120405
  Transmission Date: 20120825
  Serious: Yes (Hospitalization)
  Sender: FDA-Public Use
  Company Number: None

PATIENT
  Age: 88 Year
  Sex: Female
  Weight: 85.8 kg

DRUGS (26)
  1. VITAMIN B-12 [Concomitant]
  2. TYLENOL (CAPLET) [Concomitant]
  3. METFORMIN HCL [Concomitant]
  4. HYDROCHLOROTHIAZIDE [Concomitant]
  5. MEDROL [Concomitant]
  6. IPRATROPIUM BROMIDE [Concomitant]
  7. LIDODERM [Concomitant]
  8. CEFEPIME [Concomitant]
  9. CLONIDINE [Suspect]
     Indication: HYPERTENSION
     Dosage: 0.1 MG DAILY PO CHRONIC
     Route: 048
  10. SPIRIVA [Concomitant]
  11. COLACE [Concomitant]
  12. OS-CAL + VIT D [Concomitant]
  13. VALSARTAN [Suspect]
     Indication: HYPERTENSION
     Dosage: 320MG DAILY PO CHRONIC
     Route: 048
  14. ULTRAM [Concomitant]
  15. ADVAIR DISKUS 100/50 [Concomitant]
  16. VANCOMYCIN [Concomitant]
  17. CARDIZEM [Concomitant]
  18. DUONEB [Concomitant]
  19. LEVOTHYROXINE SODIUM [Concomitant]
  20. MUCINEX [Concomitant]
  21. ASPIRIN [Concomitant]
  22. XOPENEX [Concomitant]
  23. ZYPREXA [Concomitant]
  24. PROMETHAZINE [Concomitant]
  25. CALCIUM CARBONATE [Concomitant]
  26. PRILOSEC [Concomitant]

REACTIONS (3)
  - UNRESPONSIVE TO STIMULI [None]
  - AGITATION [None]
  - HYPOTENSION [None]
